FAERS Safety Report 12694387 (Version 2)
Quarter: 2017Q1

REPORT INFORMATION
  Report Type: Spontaneous
  Country: US (occurrence: US)
  Receive Date: 20160829
  Receipt Date: 20170215
  Transmission Date: 20170428
  Serious: No
  Sender: FDA-Public Use
  Company Number: PHEH2016US021723

PATIENT
  Age: 46 Year
  Sex: Female

DRUGS (1)
  1. VOTRIENT [Suspect]
     Active Substance: PAZOPANIB HYDROCHLORIDE
     Indication: HISTIOCYTIC SARCOMA
     Dosage: 800 MG, QD
     Route: 048
     Dates: start: 20160802

REACTIONS (3)
  - Skin discolouration [Unknown]
  - Hypertension [Unknown]
  - Joint swelling [Unknown]

NARRATIVE: CASE EVENT DATE: 20170208
